FAERS Safety Report 24445514 (Version 1)
Quarter: 2024Q4

REPORT INFORMATION
  Report Type: Spontaneous
  Country: IQ (occurrence: IQ)
  Receive Date: 20241016
  Receipt Date: 20241016
  Transmission Date: 20250114
  Serious: Yes (Death, Hospitalization)
  Sender: MYLAN
  Company Number: IQ-MYLANLABS-2024M1092125

PATIENT
  Sex: Male
  Weight: 3.3 kg

DRUGS (4)
  1. SILDENAFIL [Suspect]
     Active Substance: SILDENAFIL
     Indication: Pulmonary hypertension
     Dosage: 1 MILLIGRAM
     Route: 065
  2. DOPAMINE [Suspect]
     Active Substance: DOPAMINE HYDROCHLORIDE
     Indication: Hypotension
     Dosage: 10 MICROGRAM/KILOGRAM, QMINUTE; INFUSION
     Route: 065
  3. DOBUTAMINE [Concomitant]
     Active Substance: DOBUTAMINE HYDROCHLORIDE
     Indication: Hypotension
     Dosage: 10 MICROGRAM/KILOGRAM, QMINUTE;
     Route: 065
  4. LASIX [Concomitant]
     Active Substance: FUROSEMIDE
     Indication: Polyuria
     Dosage: 1.5 MILLIGRAM
     Route: 065

REACTIONS (3)
  - Pulmonary hypertension [Fatal]
  - Hypotension [Fatal]
  - Myocardial ischaemia [Fatal]
